FAERS Safety Report 10540710 (Version 1)
Quarter: 2014Q4

REPORT INFORMATION
  Report Type: Spontaneous
  Country: US (occurrence: None)
  Receive Date: 20141009
  Receipt Date: 20141009
  Transmission Date: 20150529
  Serious: Yes (Other)
  Sender: FDA-Public Use
  Company Number: 1000051465

PATIENT
  Age: 31 Year
  Sex: Female
  Weight: 136 kg

DRUGS (1)
  1. ESCITALOPRAM [Suspect]
     Active Substance: ESCITALOPRAM OXALATE
     Indication: DEPRESSION
     Route: 048
     Dates: start: 201301, end: 201301

REACTIONS (5)
  - Drug ineffective [None]
  - Muscle twitching [None]
  - Crying [None]
  - Headache [None]
  - Suicidal ideation [None]

NARRATIVE: CASE EVENT DATE: 201301
